FAERS Safety Report 7065317-3 (Version None)
Quarter: 2010Q4

REPORT INFORMATION
  Report Type: 
  Country: None (occurrence: None)
  Receive Date: 20101027
  Receipt Date: 20101020
  Transmission Date: 20110411
  Serious: Yes (Hospitalization, Disabling, Other)
  Sender: FDA-Public Use
  Company Number: US-B.I. PHARMACEUTICALS,INC./RIDGEFIELD-2010-BP-10005PF

PATIENT
  Sex: Female
  Weight: 54.43 kg

DRUGS (17)
  1. SPIRIVA [Suspect]
     Indication: CHRONIC OBSTRUCTIVE PULMONARY DISEASE
     Dosage: 18 MCG
     Route: 055
     Dates: start: 20060101
  2. LYRICA [Suspect]
     Indication: FIBROMYALGIA
     Dosage: 150 MG
     Route: 048
     Dates: start: 20070101, end: 20080101
  3. LYRICA [Suspect]
     Dosage: 75 MG
     Route: 048
     Dates: start: 20080101
  4. LIPITOR [Suspect]
     Indication: CEREBROVASCULAR ACCIDENT
     Dosage: 20 MG
     Dates: start: 20081016
  5. LEXAPRO [Concomitant]
  6. AMITRIPTYLINE HCL [Concomitant]
     Indication: SLEEP DISORDER
  7. AMITRIPTYLINE HCL [Concomitant]
     Indication: HEADACHE
  8. PROTONIX [Concomitant]
     Indication: ABDOMINAL DISCOMFORT
  9. PINDOLOL [Concomitant]
     Indication: HYPERTENSION
  10. FIORICET [Concomitant]
     Indication: HEADACHE
  11. LORTAB [Concomitant]
  12. SUPRAX [Concomitant]
  13. METOCLOPRAMIDE [Concomitant]
  14. COZAAR [Concomitant]
     Indication: HYPERTENSION
  15. BYSTOLIC [Concomitant]
     Indication: HYPERTENSION
  16. CARDIZEM [Concomitant]
     Indication: HYPERTENSION
  17. SERAX [Concomitant]
     Indication: NERVOUSNESS

REACTIONS (12)
  - ANAEMIA [None]
  - CEREBROVASCULAR ACCIDENT [None]
  - CHRONIC OBSTRUCTIVE PULMONARY DISEASE [None]
  - FIBROMYALGIA [None]
  - HEADACHE [None]
  - IMPAIRED DRIVING ABILITY [None]
  - MEMORY IMPAIRMENT [None]
  - MOBILITY DECREASED [None]
  - SPEECH DISORDER [None]
  - VITAMIN D DEFICIENCY [None]
  - WALKING AID USER [None]
  - WEIGHT INCREASED [None]
